FAERS Safety Report 4882474-5 (Version None)
Quarter: 2006Q1

REPORT INFORMATION
  Report Type: 
  Country: None (occurrence: None)
  Receive Date: 20060117
  Receipt Date: 20060109
  Transmission Date: 20060701
  Serious: Yes (Hospitalization)
  Sender: FDA-Public Use
  Company Number: AU-ABBOTT-06P-008-0321781-00

PATIENT
  Age: 91 Year
  Sex: Female

DRUGS (11)
  1. KLACID [Suspect]
     Indication: PNEUMONIA
     Route: 048
     Dates: end: 20040217
  2. DIGOXIN [Interacting]
     Indication: CARDIAC FAILURE CONGESTIVE
     Route: 048
     Dates: end: 20040217
  3. PAYNOCIL [Concomitant]
     Indication: ARRHYTHMIA
  4. MADOPAR [Concomitant]
     Indication: PARKINSON'S DISEASE
  5. CALCIUM CARBONATE [Concomitant]
     Indication: OSTEOPOROSIS
  6. ERGOCALCIFEROL [Concomitant]
     Indication: OSTEOPOROSIS
  7. 3-(5-AMINO-2,4-DIIODOPHENYL)-ALANIN [Concomitant]
     Indication: DRUG USE FOR UNKNOWN INDICATION
  8. FUROSEMIDE [Concomitant]
     Indication: CARDIAC FAILURE CONGESTIVE
  9. FERROUS SULFATE TAB [Concomitant]
     Indication: DRUG USE FOR UNKNOWN INDICATION
  10. AMOXICILLIN AND CLAVULANATE POTASSIUM [Concomitant]
     Indication: PNEUMONIA
  11. LEVOTHYROXINE SODIUM [Concomitant]
     Indication: HYPOTHYROIDISM

REACTIONS (4)
  - DRUG INTERACTION [None]
  - LETHARGY [None]
  - MALAISE [None]
  - THERAPEUTIC AGENT TOXICITY [None]
